FAERS Safety Report 15924877 (Version 28)
Quarter: 2025Q2

REPORT INFORMATION
  Report Type: Report from Study
  Country: NL (occurrence: NL)
  Receive Date: 20190206
  Receipt Date: 20250504
  Transmission Date: 20250716
  Serious: Yes (Hospitalization, Other)
  Sender: SANOFI AVENTIS
  Company Number: NL-SA-2019SA029467

PATIENT
  Age: 33 Year
  Sex: Female
  Weight: 68 kg

DRUGS (15)
  1. ALEMTUZUMAB [Suspect]
     Active Substance: ALEMTUZUMAB
     Indication: Relapsing multiple sclerosis
     Dosage: 12 MG, QD
     Route: 041
     Dates: start: 20181010, end: 20181012
  2. ALEMTUZUMAB [Suspect]
     Active Substance: ALEMTUZUMAB
     Dosage: 12 MG, QD
     Route: 041
     Dates: start: 20171018, end: 20171020
  3. ALEMTUZUMAB [Suspect]
     Active Substance: ALEMTUZUMAB
     Dosage: 12 MG, QD
     Route: 041
     Dates: start: 20161010, end: 20161014
  4. CEFUROXIME [Concomitant]
     Active Substance: CEFUROXIME
     Indication: Prophylaxis
     Dosage: 200 ML/HR, QD
     Route: 042
     Dates: start: 20190713, end: 20190713
  5. CEFTRIAXONE [Concomitant]
     Active Substance: CEFTRIAXONE
     Indication: Prophylaxis
     Dosage: 240 ML/HR, QD
     Route: 042
     Dates: start: 20190713, end: 20190720
  6. AMOXICILLIN [Concomitant]
     Active Substance: AMOXICILLIN
     Indication: Prophylaxis
     Dosage: 12.5 ML/HR, QD
     Route: 042
     Dates: start: 20190713, end: 20190713
  7. ESOMEPRAZOLE [Concomitant]
     Active Substance: ESOMEPRAZOLE
     Indication: Haemophagocytic lymphohistiocytosis
     Dosage: 40 MG, QD
     Route: 065
     Dates: start: 20190713
  8. FLUCONAZOLE [Concomitant]
     Active Substance: FLUCONAZOLE
     Indication: Haemophagocytic lymphohistiocytosis
     Dosage: 50 MG, QD
     Route: 065
     Dates: start: 20190713, end: 20190814
  9. FOLIC ACID [Concomitant]
     Active Substance: FOLIC ACID
     Indication: Pregnancy
     Route: 048
     Dates: start: 20190309
  10. CIPROFLOXACIN [Concomitant]
     Active Substance: CIPROFLOXACIN
     Indication: Haemophagocytic lymphohistiocytosis
     Dosage: 500 MG, QD
     Route: 048
     Dates: start: 20190713, end: 20190814
  11. VALACYCLOVIR HYDROCHLORIDE [Concomitant]
     Active Substance: VALACYCLOVIR HYDROCHLORIDE
     Indication: Prophylaxis
     Dosage: 500 MG, QD
     Route: 048
     Dates: start: 20181013
  12. VALACYCLOVIR HYDROCHLORIDE [Concomitant]
     Active Substance: VALACYCLOVIR HYDROCHLORIDE
     Indication: Haemophagocytic lymphohistiocytosis
     Dosage: 500 MG, BID
     Route: 048
     Dates: start: 20190713
  13. CLEMASTINE [Concomitant]
     Active Substance: CLEMASTINE
     Indication: Prophylaxis
     Dosage: 1 MG, QD
     Route: 048
     Dates: start: 20181011
  14. SULFAMETHOXAZOLE\TRIMETHOPRIM [Concomitant]
     Active Substance: SULFAMETHOXAZOLE\TRIMETHOPRIM
     Indication: Prophylaxis
     Dosage: DOSE 80/400 MG
     Route: 048
     Dates: start: 20181012
  15. SULFAMETHOXAZOLE\TRIMETHOPRIM [Concomitant]
     Active Substance: SULFAMETHOXAZOLE\TRIMETHOPRIM
     Indication: Haemophagocytic lymphohistiocytosis
     Dosage: 500 MG, QD
     Route: 065
     Dates: start: 20190713

REACTIONS (9)
  - Psychiatric decompensation [Recovered/Resolved]
  - Haemophagocytic lymphohistiocytosis [Not Recovered/Not Resolved]
  - Thrombocytopenia [Recovered/Resolved]
  - Insomnia [Recovered/Resolved]
  - Rash [Recovered/Resolved]
  - Genital herpes [Recovered/Resolved]
  - Alopecia totalis [Recovered/Resolved]
  - Pregnancy [Recovered/Resolved]
  - Neutropenia [Recovered/Resolved]

NARRATIVE: CASE EVENT DATE: 20181011
